FAERS Safety Report 8089129-7 (Version None)
Quarter: 2012Q1

REPORT INFORMATION
  Report Type: 
  Country: None (occurrence: None)
  Receive Date: 20120128
  Receipt Date: 20110623
  Transmission Date: 20120608
  Serious: No
  Sender: FDA-Public Use
  Company Number: US-ABBOTT-11P-163-0834669-00

PATIENT
  Age: 64 Year
  Sex: Female

DRUGS (3)
  1. UNKNOWN BLOOD PRESSURE MEDICATION [Concomitant]
     Indication: HYPERTENSION
  2. HUMIRA [Suspect]
     Route: 058
     Dates: start: 20110614
  3. HUMIRA [Suspect]
     Indication: PSORIASIS
     Dosage: 1ST LOADING DOSE
     Route: 058
     Dates: start: 20110501, end: 20110501

REACTIONS (1)
  - HEADACHE [None]
